FAERS Safety Report 8901202 (Version 1)
Quarter: 2012Q4

REPORT INFORMATION
  Report Type: 
  Country: US (occurrence: US)
  Receive Date: 20121108
  Receipt Date: 20121108
  Transmission Date: 20130627
  Serious: No
  Sender: FDA-Public Use
  Company Number: US-B.I. PHARMACEUTICALS,INC./RIDGEFIELD-2012-BP-27083BP

PATIENT
  Sex: Male
  Weight: 64 kg

DRUGS (3)
  1. SPIRIVA [Suspect]
     Indication: CHRONIC OBSTRUCTIVE PULMONARY DISEASE
     Dosage: 18 mcg
     Route: 055
     Dates: start: 201209, end: 20121018
  2. NAPROXEN [Concomitant]
     Indication: MYALGIA
  3. XANAX [Concomitant]
     Indication: ANXIETY
     Route: 048

REACTIONS (4)
  - Rash erythematous [Not Recovered/Not Resolved]
  - Rash pruritic [Not Recovered/Not Resolved]
  - Corrective lens user [Recovered/Resolved]
  - Visual impairment [Recovered/Resolved]
